FAERS Safety Report 13092997 (Version 3)
Quarter: 2017Q1

REPORT INFORMATION
  Report Type: Spontaneous
  Country: US (occurrence: US)
  Receive Date: 20170106
  Receipt Date: 20170330
  Transmission Date: 20170428
  Serious: Yes (Hospitalization, Other)
  Sender: FDA-Public Use
  Company Number: US-PFIZER INC-2017004913

PATIENT
  Age: 73 Year
  Sex: Male
  Weight: 104.3 kg

DRUGS (3)
  1. LYRICA [Suspect]
     Active Substance: PREGABALIN
     Indication: NEUROPATHY PERIPHERAL
     Dosage: 75 MG, 3X/DAY (MORNING NOON AND NIGHT)
     Route: 048
  2. VFEND [Suspect]
     Active Substance: VORICONAZOLE
     Indication: OSTEOMYELITIS
     Dosage: 200 MG, 1X/DAY
     Route: 048
  3. VFEND [Suspect]
     Active Substance: VORICONAZOLE
     Indication: SEPSIS
     Dosage: 200 MG, 2X/DAY (ONE IN THE MORNING AND ONE AT NIGHT)
     Route: 048

REACTIONS (15)
  - Cerebral fungal infection [Unknown]
  - Paralysis [Unknown]
  - Renal impairment [Unknown]
  - Road traffic accident [Unknown]
  - Bronchitis [Recovering/Resolving]
  - Kidney infection [Unknown]
  - Cerebrovascular accident [Unknown]
  - Thrombosis [Unknown]
  - Cardiac infection [Unknown]
  - Sepsis [Unknown]
  - Pneumonia [Recovering/Resolving]
  - Fungal infection [Unknown]
  - Cardiac valve disease [Unknown]
  - Urinary tract infection [Unknown]
  - Weight decreased [Unknown]

NARRATIVE: CASE EVENT DATE: 201701
